FAERS Safety Report 5383413-3 (Version None)
Quarter: 2007Q3

REPORT INFORMATION
  Report Type: 
  Country: None (occurrence: None)
  Receive Date: 20070710
  Receipt Date: 20070628
  Transmission Date: 20080115
  Serious: Yes (Death)
  Sender: FDA-Public Use
  Company Number: MX-GILEAD-2007-0011779

PATIENT
  Sex: Male

DRUGS (4)
  1. EMTRICITABINE [Suspect]
     Indication: HIV INFECTION
     Route: 048
     Dates: start: 20070225, end: 20070321
  2. TENOFOVIR DISOPROXIL FUMARATE [Suspect]
     Indication: HIV INFECTION
     Dates: start: 20070225, end: 20070321
  3. EFAVIRENZ [Concomitant]
     Indication: HIV INFECTION
     Dates: start: 20070225, end: 20070321
  4. FLUCONAZOLE [Concomitant]
     Dates: start: 20070225

REACTIONS (2)
  - HISTOPLASMOSIS DISSEMINATED [None]
  - MULTI-ORGAN FAILURE [None]
